FAERS Safety Report 4288776-8 (Version None)
Quarter: 2004Q1

REPORT INFORMATION
  Report Type: 
  Country: None (occurrence: None)
  Receive Date: 20040205
  Receipt Date: 20040116
  Transmission Date: 20041129
  Serious: Yes (Hospitalization)
  Sender: FDA-Public Use
  Company Number: A02200400198

PATIENT
  Age: 81 Year
  Sex: Male

DRUGS (6)
  1. PLAVIX [Suspect]
     Indication: DRUG INTOLERANCE
     Dosage: 75 MG OD, ORAL
     Route: 048
     Dates: start: 20030722, end: 20031011
  2. ZOLOFT [Suspect]
     Dosage: 50 MG OD, ORAL
     Route: 048
     Dates: end: 20031011
  3. VASTEN - (PRAVASTATIN SODIUM) - TABLET - 20 MG [Suspect]
     Dosage: 20 MG OD, ORAL
     Route: 048
     Dates: end: 20031011
  4. BISOPROLOL FUMARATE [Concomitant]
  5. OMEPRAZOLE [Concomitant]
  6. AMLODIPINE BESYLATE [Concomitant]

REACTIONS (13)
  - BLOOD PRESSURE SYSTOLIC INCREASED [None]
  - BODY TEMPERATURE INCREASED [None]
  - GASTROINTESTINAL HAEMORRHAGE [None]
  - HAEMATURIA [None]
  - HENOCH-SCHONLEIN PURPURA [None]
  - INFLAMMATION [None]
  - LEUKOCYTOCLASTIC VASCULITIS [None]
  - NEPHROTIC SYNDROME [None]
  - OEDEMA PERIPHERAL [None]
  - REFLUX OESOPHAGITIS [None]
  - RENAL FAILURE [None]
  - ULCER [None]
  - WEIGHT DECREASED [None]
